FAERS Safety Report 6965789-6 (Version None)
Quarter: 2010Q3

REPORT INFORMATION
  Report Type: 
  Country: None (occurrence: None)
  Receive Date: 20100903
  Receipt Date: 20100903
  Transmission Date: 20110219
  Serious: Yes (Disabling)
  Sender: FDA-Public Use
  Company Number: FR-MPIJNJ-2010-01446

PATIENT

DRUGS (5)
  1. VELCADE [Suspect]
     Indication: MULTIPLE MYELOMA
     Dosage: UNK
     Route: 042
     Dates: start: 20090217
  2. VELCADE [Suspect]
     Dosage: 2.6 MG, UNK
     Route: 042
     Dates: start: 20091126
  3. DEXAMETHASONE [Suspect]
     Indication: MULTIPLE MYELOMA
     Dosage: 40 MG, UNK
     Route: 048
     Dates: start: 20090511
  4. MOPRAL                             /00661201/ [Suspect]
     Indication: PROPHYLAXIS AGAINST GASTROINTESTINAL ULCER
     Dosage: 20 MG, UNK
     Route: 048
  5. EXOMUC [Suspect]
     Indication: BRONCHIAL DISORDER
     Dosage: UNK
     Route: 048
     Dates: start: 20090731

REACTIONS (4)
  - DEAFNESS UNILATERAL [None]
  - EAR INFECTION [None]
  - EAR PAIN [None]
  - TINNITUS [None]
